FAERS Safety Report 8225120-5 (Version None)
Quarter: 2012Q1

REPORT INFORMATION
  Report Type: 
  Country: None (occurrence: None)
  Receive Date: 20120321
  Receipt Date: 20120316
  Transmission Date: 20120608
  Serious: No
  Sender: FDA-Public Use
  Company Number: CA-JNJFOC-20120308342

PATIENT
  Sex: Female
  Weight: 102 kg

DRUGS (1)
  1. SIMPONI [Suspect]
     Indication: ANKYLOSING SPONDYLITIS
     Route: 058
     Dates: start: 20120316

REACTIONS (3)
  - FLUSHING [None]
  - IMMEDIATE POST-INJECTION REACTION [None]
  - FEELING ABNORMAL [None]
